FAERS Safety Report 20860111 (Version 1)
Quarter: 2022Q2

REPORT INFORMATION
  Report Type: Spontaneous
  Country: US (occurrence: None)
  Receive Date: 20220520
  Receipt Date: 20220520
  Transmission Date: 20220720
  Serious: Yes (Hospitalization)
  Sender: FDA-Public Use
  Company Number: None

PATIENT
  Sex: Female
  Weight: 42.18 kg

DRUGS (9)
  1. IBRANCE [Suspect]
     Active Substance: PALBOCICLIB
     Indication: Breast cancer
     Dosage: FREQUENCY : DAILY;?
     Route: 048
     Dates: start: 202201, end: 20220504
  2. AMLODIPINE [Concomitant]
     Active Substance: AMLODIPINE BESYLATE
  3. LEVOTHYROXINE [Concomitant]
     Active Substance: LEVOTHYROXINE
  4. EXEMESTANE [Concomitant]
     Active Substance: EXEMESTANE
  5. FOLIC ACID [Concomitant]
     Active Substance: FOLIC ACID
  6. METHOTREXATE [Concomitant]
     Active Substance: METHOTREXATE
  7. LATANOPROST [Concomitant]
  8. VITAMINS [Concomitant]
     Active Substance: VITAMINS
  9. CALCIUM [Concomitant]
     Active Substance: CALCIUM

REACTIONS (2)
  - Pleural effusion [None]
  - Therapy interrupted [None]
